FAERS Safety Report 9808837 (Version 2)
Quarter: 2014Q1

REPORT INFORMATION
  Report Type: Spontaneous
  Country: BR (occurrence: BR)
  Receive Date: 20140110
  Receipt Date: 20140117
  Transmission Date: 20141002
  Serious: Yes (Hospitalization)
  Sender: FDA-Public Use
  Company Number: BR-PFIZER INC-2014005502

PATIENT
  Age: 79 Year
  Sex: Female

DRUGS (2)
  1. OLMETEC HCT [Suspect]
     Indication: HYPERTENSION
     Dosage: [OLMESARTAN MEDOXOMIL 40MG]/ [HYDROCHLOROTHIAZIDE 12.5MG] (ONE TABLET), DAILY
     Route: 048
     Dates: start: 20091122
  2. LIPITOR [Suspect]
     Indication: BLOOD CHOLESTEROL INCREASED
     Dosage: 10 MG (ONE TABLET), DAILY
     Route: 048
     Dates: start: 20110630

REACTIONS (1)
  - Gastrointestinal carcinoma [Unknown]
